FAERS Safety Report 8899948 (Version 2)
Quarter: 2012Q4

REPORT INFORMATION
  Report Type: 
  Country: DE (occurrence: DE)
  Receive Date: 20121109
  Receipt Date: 20121126
  Transmission Date: 20130627
  Serious: Yes (Hospitalization, Other)
  Sender: FDA-Public Use
  Company Number: PHHY2012DE102915

PATIENT
  Age: 71 Year
  Sex: Female

DRUGS (3)
  1. CITALOPRAM [Suspect]
     Indication: MAJOR DEPRESSION
     Dosage: 10 mg, per day
  2. CITALOPRAM [Suspect]
     Dosage: 20 mg, per day
  3. BUDESONIDE W/FORMOTEROL FUMARATE [Concomitant]
     Indication: BRONCHITIS CHRONIC

REACTIONS (7)
  - Cutaneous lupus erythematosus [Recovered/Resolved]
  - Erythema [Recovered/Resolved]
  - Pruritus [Recovered/Resolved]
  - Blister [Recovered/Resolved]
  - Pyrexia [Recovered/Resolved]
  - Malaise [Recovered/Resolved]
  - Rash [Recovered/Resolved]
